FAERS Safety Report 4660916-8 (Version None)
Quarter: 2005Q2

REPORT INFORMATION
  Report Type: 
  Country: None (occurrence: None)
  Receive Date: 20050511
  Receipt Date: 20050505
  Transmission Date: 20051028
  Serious: Yes (Death)
  Sender: FDA-Public Use
  Company Number: 2217-51

PATIENT
  Age: 70 Year
  Sex: Female

DRUGS (4)
  1. AZMACORT [Suspect]
     Indication: ASTHMA
     Dates: end: 20050124
  2. PROVENTIL-HFA [Suspect]
     Indication: DYSPNOEA
     Dosage: 2 DAILY PUFFS
     Dates: start: 19930101, end: 20050124
  3. SEREVENT [Suspect]
     Indication: ASTHMA
     Dates: end: 20050124
  4. SINGULAIR [Suspect]
     Indication: ASTHMA
     Dates: end: 20050124

REACTIONS (6)
  - BACK PAIN [None]
  - DIZZINESS [None]
  - DYSPNOEA [None]
  - HEART RATE INCREASED [None]
  - LOSS OF CONSCIOUSNESS [None]
  - PHARMACEUTICAL PRODUCT COMPLAINT [None]
